FAERS Safety Report 6452834-X (Version None)
Quarter: 2009Q4

REPORT INFORMATION
  Report Type: 
  Country: None (occurrence: None)
  Receive Date: 20091123
  Receipt Date: 20091123
  Transmission Date: 20100525
  Serious: Yes (Life-Threatening, Disabling)
  Sender: FDA-Public Use
  Company Number: None

PATIENT
  Sex: Female

DRUGS (1)
  1. SIMVASTATIN [Suspect]
     Indication: BLOOD CHOLESTEROL
     Dosage: 2 TABLETS AT BEDTIME
     Dates: start: 20090212, end: 20090311

REACTIONS (3)
  - ABASIA [None]
  - DYSSTASIA [None]
  - IMPAIRED SELF-CARE [None]
